FAERS Safety Report 18317427 (Version 2)
Quarter: 2020Q4

REPORT INFORMATION
  Report Type: Report from Study
  Country: US (occurrence: US)
  Receive Date: 20200928
  Receipt Date: 20201009
  Transmission Date: 20210113
  Serious: Yes (Other)
  Sender: FDA-Public Use
  Company Number: US-ACADIA PHARMACEUTICALS INC.-ACA-2020-PIM-003060

PATIENT
  Age: 84 Year
  Sex: Male

DRUGS (1)
  1. NUPLAZID [Suspect]
     Active Substance: PIMAVANSERIN TARTRATE
     Indication: PARKINSON^S DISEASE
     Dosage: 10 MILLIGRAM, QD
     Route: 048
     Dates: start: 20200818, end: 2020

REACTIONS (9)
  - Abdominal pain upper [Unknown]
  - Underdose [Unknown]
  - Peripheral coldness [Unknown]
  - Swelling face [Unknown]
  - Fatigue [Unknown]
  - Hallucination [Not Recovered/Not Resolved]
  - Heart rate increased [Unknown]
  - Peripheral swelling [Unknown]
  - Loss of consciousness [Unknown]

NARRATIVE: CASE EVENT DATE: 202008
